FAERS Safety Report 11543448 (Version 1)
Quarter: 2015Q3

REPORT INFORMATION
  Report Type: Spontaneous
  Country: US (occurrence: US)
  Receive Date: 20150923
  Receipt Date: 20150923
  Transmission Date: 20151125
  Serious: Yes (Other)
  Sender: FDA-Public Use
  Company Number: US-KOWA-2014S1001713

PATIENT
  Age: 52 Year
  Sex: Female
  Weight: 66.8 kg

DRUGS (5)
  1. SYNTHROID [Concomitant]
     Active Substance: LEVOTHYROXINE SODIUM
     Indication: HYPOTHYROIDISM
  2. ASPIRIN. [Concomitant]
     Active Substance: ASPIRIN
  3. MULTIVITAMIN /07423501/ [Concomitant]
  4. PITAVASTATIN [Suspect]
     Active Substance: PITAVASTATIN
     Indication: HYPERLIPIDAEMIA
     Dosage: 2 MG, TIW
     Route: 048
     Dates: start: 20140418, end: 20140611
  5. AMLODIPINE [Concomitant]
     Active Substance: AMLODIPINE BESYLATE

REACTIONS (2)
  - Inappropriate schedule of drug administration [Unknown]
  - Chest discomfort [Recovered/Resolved]
